FAERS Safety Report 15316080 (Version 1)
Quarter: 2018Q3

REPORT INFORMATION
  Report Type: Spontaneous
  Country: US (occurrence: US)
  Receive Date: 20180816
  Receipt Date: 20180816
  Transmission Date: 20181010
  Serious: Yes (Life-Threatening, Hospitalization, Disabling)
  Sender: FDA-Public Use
  Company Number: None

PATIENT
  Age: 63 Year
  Sex: Male
  Weight: 101.25 kg

DRUGS (9)
  1. VITAMIN D [Concomitant]
     Active Substance: CHOLECALCIFEROL
  2. VITAMIN B?6 [Concomitant]
     Active Substance: PYRIDOXINE
  3. VALSARTAN AND HYDROCHLOROTHIAZIDE [Suspect]
     Active Substance: HYDROCHLOROTHIAZIDE\VALSARTAN
     Indication: HYPERTENSION
     Route: 048
  4. VITAMIN C [Concomitant]
     Active Substance: ASCORBIC ACID
  5. VITAMIN B12 [Concomitant]
     Active Substance: CYANOCOBALAMIN
  6. CALTRATE WITH VITAMIN D [Concomitant]
     Active Substance: CALCIUM CARBONATE\CHOLECALCIFEROL
  7. CENTRUM SILVER [Concomitant]
     Active Substance: MINERALS\VITAMINS
  8. SIMVASTATIN. [Concomitant]
     Active Substance: SIMVASTATIN
  9. OMNAPRAZOLE [Concomitant]

REACTIONS (4)
  - Anaplastic large-cell lymphoma [None]
  - Product use issue [None]
  - Diffuse large B-cell lymphoma [None]
  - Product impurity [None]

NARRATIVE: CASE EVENT DATE: 20180402
